FAERS Safety Report 18506362 (Version 1)
Quarter: 2020Q4

REPORT INFORMATION
  Report Type: Report from Study
  Country: US (occurrence: US)
  Receive Date: 20201116
  Receipt Date: 20201116
  Transmission Date: 20210114
  Serious: Yes (Other)
  Sender: FDA-Public Use
  Company Number: US-B.I. PHARMACEUTICALS,INC./RIDGEFIELD-2020-BI-047366

PATIENT
  Age: 78 Year
  Weight: 85.5 kg

DRUGS (3)
  1. IMODIUM [Concomitant]
     Active Substance: LOPERAMIDE HYDROCHLORIDE
     Indication: DIARRHOEA
     Dosage: CONT. FREQUENCY:
     Route: 065
     Dates: start: 201906
  2. PANTOPRAZOLE [Concomitant]
     Active Substance: PANTOPRAZOLE
     Indication: GASTROOESOPHAGEAL REFLUX DISEASE
     Dosage: CONT.
     Route: 065
     Dates: start: 201805
  3. OFEV [Suspect]
     Active Substance: NINTEDANIB
     Indication: IDIOPATHIC PULMONARY FIBROSIS
     Dosage: 300MG
     Route: 048
     Dates: start: 20190613, end: 20200819

REACTIONS (2)
  - Angiopathy [Not Recovered/Not Resolved]
  - Spinal stroke [Not Recovered/Not Resolved]

NARRATIVE: CASE EVENT DATE: 20200818
